FAERS Safety Report 9293940 (Version 1)
Quarter: 2013Q1

REPORT INFORMATION
  Report Type: Spontaneous
  Country: US (occurrence: None)
  Receive Date: 20121217
  Receipt Date: 20121217
  Transmission Date: 20140127
  Serious: Yes (Hospitalization)
  Sender: FDA-Public Use
  Company Number: 2012FO001296

PATIENT
  Sex: Male

DRUGS (3)
  1. SOLARAZE [Suspect]
     Indication: ACTINIC KERATOSIS
     Route: 061
     Dates: start: 201208, end: 201208
  2. EFFIENT [Suspect]
     Indication: ANTICOAGULANT THERAPY
  3. ASPIRIN [Suspect]
     Indication: PRODUCT USED FOR UNKNOWN INDICATION

REACTIONS (4)
  - Chest discomfort [None]
  - Dyspnoea [None]
  - Myalgia [None]
  - Drug interaction [None]
